FAERS Safety Report 5663433-1 (Version None)
Quarter: 2008Q1

REPORT INFORMATION
  Report Type: 
  Country: None (occurrence: None)
  Receive Date: 20080310
  Receipt Date: 20080305
  Transmission Date: 20080703
  Serious: Yes (Other)
  Sender: FDA-Public Use
  Company Number: 2007SP020728

PATIENT
  Age: 45 Year
  Sex: Male
  Weight: 74.8435 kg

DRUGS (5)
  1. PEG-INTRON [Suspect]
     Indication: HEPATITIS C
     Dosage: 120 MCG; SC
     Route: 058
     Dates: start: 20070719
  2. RIBAVIRIN [Suspect]
     Indication: HEPATITIS C
     Dosage: 1000 MG;QD;PO
     Route: 048
     Dates: start: 20070719
  3. IBUPROFEN [Concomitant]
  4. ULTRAM [Concomitant]
  5. LEXAPRO [Concomitant]

REACTIONS (7)
  - DEHYDRATION [None]
  - DYSGEUSIA [None]
  - FRUSTRATION [None]
  - INSOMNIA [None]
  - LOOSE TOOTH [None]
  - TOOTH FRACTURE [None]
  - WEIGHT DECREASED [None]
